FAERS Safety Report 24420806 (Version 1)
Quarter: 2024Q4

REPORT INFORMATION
  Report Type: Spontaneous
  Country: US (occurrence: US)
  Receive Date: 20241010
  Receipt Date: 20241010
  Transmission Date: 20250114
  Serious: No
  Sender: ABBVIE
  Company Number: US-ABBVIE-5948901

PATIENT
  Sex: Female
  Weight: 49.8 kg

DRUGS (2)
  1. SKYRIZI [Suspect]
     Active Substance: RISANKIZUMAB-RZAA
     Indication: Psoriasis
     Dosage: FORM STRENGTH: 150 MILLIGRAM
     Route: 058
     Dates: start: 202107
  2. SKYRIZI [Suspect]
     Active Substance: RISANKIZUMAB-RZAA
     Indication: Psoriatic arthropathy

REACTIONS (19)
  - Joint swelling [Recovered/Resolved]
  - Skin infection [Recovered/Resolved]
  - Skin haemorrhage [Recovered/Resolved]
  - Therapeutic product effect decreased [Not Recovered/Not Resolved]
  - Skin swelling [Recovered/Resolved]
  - Condition aggravated [Recovered/Resolved]
  - Skin swelling [Recovering/Resolving]
  - Skin exfoliation [Not Recovered/Not Resolved]
  - Infection [Recovered/Resolved]
  - Joint swelling [Not Recovered/Not Resolved]
  - Skin exfoliation [Recovering/Resolving]
  - Condition aggravated [Recovered/Resolved]
  - Skin fissures [Recovered/Resolved]
  - Skin exfoliation [Recovered/Resolved]
  - Skin haemorrhage [Recovering/Resolving]
  - Skin fissures [Recovering/Resolving]
  - Drug ineffective [Unknown]
  - Therapeutic response shortened [Not Recovered/Not Resolved]
  - Therapeutic product effect delayed [Not Recovered/Not Resolved]

NARRATIVE: CASE EVENT DATE: 20220101
